FAERS Safety Report 7512278-6 (Version None)
Quarter: 2011Q2

REPORT INFORMATION
  Report Type: 
  Country: None (occurrence: None)
  Receive Date: 20110520
  Receipt Date: 20110505
  Transmission Date: 20111010
  Serious: Yes (Death)
  Sender: FDA-Public Use
  Company Number: DSJ-2011-08684

PATIENT
  Age: 52 Year
  Sex: Female

DRUGS (5)
  1. LOXONIN (LOXOPROFEN SODIUM) (LOXOPROFEN SODIUM) [Concomitant]
  2. FLOMOX (CEFCAPENE PIVOXIL HYDROCHLORIDE) (CEFCAPENE PIVOXIL HYDROCHLOR [Concomitant]
  3. OLMESARTAN MEDOXOMIL [Suspect]
     Indication: BLOOD PRESSURE INCREASED
     Dates: start: 20101126
  4. AXITINIB [Suspect]
     Indication: METASTATIC RENAL CELL CARCINOMA
     Dosage: 10 MG (5 MG, 2 IN 1 D), PER ORAL; 6 MG (3 MG, 2 IN 1 D), PER ORAL
     Route: 048
     Dates: start: 20110114, end: 20110425
  5. AXITINIB [Suspect]
     Indication: METASTATIC RENAL CELL CARCINOMA
     Dosage: 10 MG (5 MG, 2 IN 1 D), PER ORAL; 6 MG (3 MG, 2 IN 1 D), PER ORAL
     Route: 048
     Dates: start: 20101126, end: 20110113

REACTIONS (3)
  - THROAT TIGHTNESS [None]
  - CIRCULATORY COLLAPSE [None]
  - LIPOMA [None]
